FAERS Safety Report 10211579 (Version 1)
Quarter: 2014Q2

REPORT INFORMATION
  Report Type: Spontaneous
  Country: US (occurrence: US)
  Receive Date: 20140602
  Receipt Date: 20140602
  Transmission Date: 20141212
  Serious: Yes (Other)
  Sender: FDA-Public Use
  Company Number: US-PFIZER INC-2014148331

PATIENT
  Age: 59 Year
  Sex: Female
  Weight: 64.85 kg

DRUGS (2)
  1. REVATIO [Suspect]
     Indication: PULMONARY HYPERTENSION
     Dosage: 20 MG, 3X/DAY
     Route: 048
     Dates: start: 2013
  2. LETAIRIS [Concomitant]
     Indication: PULMONARY HYPERTENSION
     Dosage: UNK

REACTIONS (1)
  - Deafness [Unknown]
